FAERS Safety Report 7940532-2 (Version None)
Quarter: 2011Q4

REPORT INFORMATION
  Report Type: 
  Country: None (occurrence: None)
  Receive Date: 20111114
  Receipt Date: 20110329
  Transmission Date: 20120403
  Serious: Yes (Other)
  Sender: FDA-Public Use
  Company Number: 2011S1000234

PATIENT
  Sex: Female

DRUGS (1)
  1. CUBICIN [Suspect]
     Indication: BACTERAEMIA
     Dosage: 6 MG/KG;QD;IV
     Route: 042
     Dates: end: 20110328

REACTIONS (1)
  - RHABDOMYOLYSIS [None]
